FAERS Safety Report 15181016 (Version 1)
Quarter: 2018Q3

REPORT INFORMATION
  Report Type: Spontaneous
  Country: US (occurrence: US)
  Receive Date: 20180723
  Receipt Date: 20180723
  Transmission Date: 20181010
  Serious: No
  Sender: FDA-Public Use
  Company Number: US-ASCENT PHARMACEUTICALS, INC.-2052578

PATIENT
  Sex: Female

DRUGS (4)
  1. CANCER MEDICATION [Concomitant]
     Active Substance: UNSPECIFIED INGREDIENT
  2. OXYCODONE AND ACETAMINOPHEN [Suspect]
     Active Substance: ACETAMINOPHEN\OXYCODONE HYDROCHLORIDE
     Indication: PAIN
     Route: 048
     Dates: start: 20180405
  3. GABAPENTIN. [Concomitant]
     Active Substance: GABAPENTIN
  4. STOMACH MEDICATION [Concomitant]

REACTIONS (1)
  - Drug ineffective [Unknown]
